FAERS Safety Report 7579517-7 (Version None)
Quarter: 2011Q2

REPORT INFORMATION
  Report Type: 
  Country: None (occurrence: None)
  Receive Date: 20110629
  Receipt Date: 20110615
  Transmission Date: 20111010
  Serious: Yes (Hospitalization)
  Sender: FDA-Public Use
  Company Number: US-JNJFOC-20110512917

PATIENT
  Sex: Female
  Weight: 89.36 kg

DRUGS (1)
  1. REMICADE [Suspect]
     Indication: RHEUMATOID ARTHRITIS
     Route: 042
     Dates: start: 20110101

REACTIONS (4)
  - MALAISE [None]
  - PNEUMONIA [None]
  - BRONCHITIS [None]
  - DYSPHONIA [None]
